FAERS Safety Report 17766717 (Version 2)
Quarter: 2020Q2

REPORT INFORMATION
  Report Type: Not Available
  Country: US (occurrence: US)
  Receive Date: 20200511
  Receipt Date: 20200520
  Transmission Date: 20200714
  Serious: Yes (Death)
  Sender: FDA-Public Use
  Company Number: US-NEUROCRINE BIOSCIENCES INC.-2020NBI01491

PATIENT
  Sex: Male

DRUGS (4)
  1. INGREZZA [Suspect]
     Active Substance: VALBENAZINE
     Indication: TARDIVE DYSKINESIA
     Route: 048
     Dates: start: 20200302, end: 20200504
  2. INGREZZA [Suspect]
     Active Substance: VALBENAZINE
     Route: 048
  3. BUPROPION ER [Concomitant]
     Active Substance: BUPROPION
  4. PALIPERIDONE ER [Concomitant]
     Active Substance: PALIPERIDONE
     Dosage: AT BEDTIME

REACTIONS (1)
  - Overdose [Fatal]
